FAERS Safety Report 5002327-1 (Version None)
Quarter: 2006Q2

REPORT INFORMATION
  Report Type: 
  Country: None (occurrence: None)
  Receive Date: 20060512
  Receipt Date: 20060427
  Transmission Date: 20061013
  Serious: Yes (Death, Other)
  Sender: FDA-Public Use
  Company Number: DK200604004657

PATIENT
  Age: 10 Hour
  Sex: Female
  Weight: 3 kg

DRUGS (1)
  1. FLUOXETINE HYDROCHLORIDE [Suspect]
     Indication: DEPRESSION
     Dosage: TRANSPLACENTAL
     Route: 064
     Dates: end: 20051219

REACTIONS (5)
  - CARDIOPULMONARY FAILURE [None]
  - DRUG EXPOSURE DURING PREGNANCY [None]
  - HAEMORRHAGE [None]
  - PERSISTENT FOETAL CIRCULATION [None]
  - PULMONARY OEDEMA [None]
